FAERS Safety Report 5671406-8 (Version None)
Quarter: 2008Q1

REPORT INFORMATION
  Report Type: 
  Country: None (occurrence: None)
  Receive Date: 20080313
  Receipt Date: 20080227
  Transmission Date: 20080703
  Serious: Yes (Life-Threatening)
  Sender: FDA-Public Use
  Company Number: S08-FIN-00749-01

PATIENT
  Age: 70 Year
  Sex: Male

DRUGS (7)
  1. ESCITALOPRAM [Suspect]
     Indication: DEPRESSION
     Dosage: 5 MG QD PO
     Route: 048
     Dates: start: 20080212
  2. MAREVAN (WARFARIN) [Suspect]
     Dosage: 3 MG QD PO
     Route: 048
     Dates: end: 20080213
  3. MAREVAN (WARFARIN) [Suspect]
     Dates: start: 20080214
  4. SPESICOR (METOPROLOL TARTRATE) [Concomitant]
  5. FUROSEMIDE [Concomitant]
  6. LIPITOR [Concomitant]
  7. RAMIPRIL COPYFARM (RAMIPRIL) [Concomitant]

REACTIONS (2)
  - DRUG INTERACTION [None]
  - INTERNATIONAL NORMALISED RATIO INCREASED [None]
